FAERS Safety Report 22520210 (Version 1)
Quarter: 2023Q2

REPORT INFORMATION
  Report Type: Spontaneous
  Country: US (occurrence: None)
  Receive Date: 20230602
  Receipt Date: 20230602
  Transmission Date: 20230721
  Serious: Yes (Other)
  Sender: FDA-Public Use
  Company Number: None

PATIENT
  Age: 45 Year
  Sex: Female
  Weight: 76.5 kg

DRUGS (10)
  1. XEOMIN [Suspect]
     Active Substance: INCOBOTULINUMTOXINA
     Indication: Hypertonia
     Dosage: OTHER FREQUENCY : ADMIN. BY PHYSICIA;?
     Route: 030
     Dates: start: 20230524, end: 20230524
  2. AGGRENOX [Concomitant]
     Active Substance: ASPIRIN\DIPYRIDAMOLE
  3. ALBUTEROL [Concomitant]
     Active Substance: ALBUTEROL
  4. CYMBALTA [Concomitant]
     Active Substance: DULOXETINE HYDROCHLORIDE
  5. JARDIANCE [Concomitant]
     Active Substance: EMPAGLIFLOZIN
  6. METFORMIN [Concomitant]
     Active Substance: METFORMIN HYDROCHLORIDE
  7. NEURONTIN [Concomitant]
     Active Substance: GABAPENTIN
  8. PREVACID [Concomitant]
     Active Substance: LANSOPRAZOLE
  9. ZANAFLEX [Concomitant]
     Active Substance: TIZANIDINE HYDROCHLORIDE
  10. ZETIA [Concomitant]
     Active Substance: EZETIMIBE

REACTIONS (2)
  - Abdominal pain [None]
  - Vertigo [None]

NARRATIVE: CASE EVENT DATE: 20230601
